FAERS Safety Report 5685929-9 (Version None)
Quarter: 2008Q1

REPORT INFORMATION
  Report Type: 
  Country: None (occurrence: None)
  Receive Date: 20080328
  Receipt Date: 20070821
  Transmission Date: 20080703
  Serious: No
  Sender: FDA-Public Use
  Company Number: US-BAYER-US-2007-031637

PATIENT
  Age: 42 Year
  Sex: Female
  Weight: 70 kg

DRUGS (3)
  1. MIRENA [Suspect]
     Indication: CONTRACEPTION
     Route: 015
     Dates: start: 20070707, end: 20070811
  2. DEPO-PROVERA [Concomitant]
     Route: 030
  3. KEFLEX [Concomitant]

REACTIONS (1)
  - DYSFUNCTIONAL UTERINE BLEEDING [None]
